FAERS Safety Report 16982262 (Version 2)
Quarter: 2022Q1

REPORT INFORMATION
  Report Type: Report from Study
  Country: US (occurrence: US)
  Receive Date: 20191101
  Receipt Date: 20220228
  Transmission Date: 20220423
  Serious: Yes (Hospitalization)
  Sender: FDA-Public Use
  Company Number: US-ACADIA PHARMACEUTICALS INC.-ACA-2019-014540

PATIENT
  Sex: Female

DRUGS (2)
  1. NUPLAZID [Suspect]
     Active Substance: PIMAVANSERIN TARTRATE
     Indication: Parkinson^s disease
     Dosage: 34 MG, QD
     Route: 048
  2. ARICEPT [Suspect]
     Active Substance: DONEPEZIL HYDROCHLORIDE

REACTIONS (3)
  - Gastrointestinal disorder [Unknown]
  - Anxiety [Unknown]
  - Diarrhoea [Recovering/Resolving]
